FAERS Safety Report 21572212 (Version 1)
Quarter: 2022Q4

REPORT INFORMATION
  Report Type: Spontaneous
  Country: US (occurrence: None)
  Receive Date: 20221108
  Receipt Date: 20221108
  Transmission Date: 20230113
  Serious: Yes (Hospitalization)
  Sender: FDA-Public Use
  Company Number: None

PATIENT
  Age: 55 Year
  Sex: Female
  Weight: 79.4 kg

DRUGS (1)
  1. NEBIVOLOL [Suspect]
     Active Substance: NEBIVOLOL
     Indication: Essential hypertension
     Dosage: 1 TABLET  TWICE DAILY ORALLY
     Route: 048
     Dates: start: 20220621, end: 20221018

REACTIONS (7)
  - Hypertensive crisis [None]
  - Nausea [None]
  - Headache [None]
  - Dizziness [None]
  - Asthenia [None]
  - Vomiting [None]
  - Drug intolerance [None]

NARRATIVE: CASE EVENT DATE: 20220811
